FAERS Safety Report 14436771 (Version 1)
Quarter: 2018Q1

REPORT INFORMATION
  Report Type: Spontaneous
  Country: US (occurrence: US)
  Receive Date: 20180125
  Receipt Date: 20180125
  Transmission Date: 20180509
  Serious: No
  Sender: FDA-Public Use
  Company Number: US-UNITED THERAPEUTICS-UNT-2017-011935

PATIENT
  Sex: Female
  Weight: 105.67 kg

DRUGS (1)
  1. REMODULIN [Suspect]
     Active Substance: TREPROSTINIL
     Indication: PULMONARY ARTERIAL HYPERTENSION
     Dosage: 0.042 ?G/KG, CONTINUING
     Route: 058
     Dates: start: 20170608

REACTIONS (4)
  - Diarrhoea [Unknown]
  - Malabsorption from administration site [Unknown]
  - Accidental overdose [Unknown]
  - Pain [Unknown]

NARRATIVE: CASE EVENT DATE: 2017
